FAERS Safety Report 8424959-0 (Version None)
Quarter: 2012Q2

REPORT INFORMATION
  Report Type: 
  Country: None (occurrence: None)
  Receive Date: 20120611
  Receipt Date: 20120531
  Transmission Date: 20120825
  Serious: Yes (Death, Life-Threatening, Hospitalization)
  Sender: FDA-Public Use
  Company Number: JP-UCBSA-057372

PATIENT
  Age: 41 Year
  Sex: Male
  Weight: 51 kg

DRUGS (20)
  1. PHENYTOIN SODIUM CAP [Suspect]
     Indication: CONVULSION PROPHYLAXIS
     Dosage: DAILY DOSE: 250 MG
     Route: 048
     Dates: end: 20120127
  2. LOXONIN [Concomitant]
     Indication: HEADACHE
     Dosage: DAILY DOSE: 180 MG
     Route: 048
     Dates: start: 20120118, end: 20120126
  3. MUCOSTA [Concomitant]
     Indication: GASTRITIS PROPHYLAXIS
     Dosage: DAILY DOSE: 300 MG
     Route: 048
     Dates: start: 20120118, end: 20120126
  4. WAKOBITAL [Concomitant]
     Indication: PARTIAL SEIZURES WITH SECONDARY GENERALISATION
     Dosage: DAILY DOSE: 100 MG
     Route: 054
     Dates: start: 20120126, end: 20120210
  5. DECADRON [Concomitant]
     Indication: METASTATIC NEOPLASM
     Dates: start: 20120101
  6. METHYLCOBAL [Concomitant]
     Indication: IIIRD NERVE PARALYSIS
     Dosage: DAILY DOSE: 1500 MCG
     Route: 048
     Dates: end: 20120127
  7. RAMELTEON [Concomitant]
     Indication: VOMITING
     Dosage: DAILY DOSE: 0.1 MG
     Route: 048
     Dates: end: 20111225
  8. GLYCEOL [Concomitant]
     Indication: GLIOBLASTOMA
     Dates: start: 20120101
  9. GLYCEOL [Concomitant]
     Indication: METASTATIC NEOPLASM
     Dates: start: 20120101
  10. LANSOPRAZOLE [Concomitant]
     Indication: PROPHYLAXIS AGAINST GASTROINTESTINAL ULCER
     Dosage: DAILY DOSE: 30 MG
     Route: 048
     Dates: end: 20120127
  11. OMEPRAZOLE [Concomitant]
     Indication: PROPHYLAXIS AGAINST GASTROINTESTINAL ULCER
     Dosage: DAILY DOSE: 20 MG
     Route: 041
     Dates: start: 20120127, end: 20120129
  12. DECADRON [Concomitant]
     Indication: GLIOBLASTOMA
     Dates: start: 20120101
  13. DECADRON [Concomitant]
     Indication: HEADACHE
     Dates: start: 20120101
  14. PREDNISOLONE [Concomitant]
     Indication: ALTERED STATE OF CONSCIOUSNESS
     Dates: start: 20120101
  15. GLYCEOL [Concomitant]
     Indication: ALTERED STATE OF CONSCIOUSNESS
     Dates: start: 20120101
  16. DECADRON [Concomitant]
     Indication: ALTERED STATE OF CONSCIOUSNESS
     Dates: start: 20120101
  17. TEMODAL [Suspect]
     Indication: GLIOBLASTOMA
     Dosage: DAILY DOSE: 320 MG
     Route: 048
     Dates: end: 20111225
  18. KEPPRA [Suspect]
     Indication: PARTIAL SEIZURES WITH SECONDARY GENERALISATION
     Route: 048
     Dates: start: 20111222, end: 20120131
  19. PHENOBARBITAL TAB [Concomitant]
     Indication: PARTIAL SEIZURES WITH SECONDARY GENERALISATION
     Dosage: DAILY DOSE: 100 MG
     Route: 030
     Dates: start: 20120125, end: 20120126
  20. GLYCEOL [Concomitant]
     Indication: HEADACHE
     Dates: start: 20120101

REACTIONS (4)
  - METASTATIC NEOPLASM [None]
  - ALTERED STATE OF CONSCIOUSNESS [None]
  - HEADACHE [None]
  - GLIOBLASTOMA [None]
